FAERS Safety Report 6077974-9 (Version None)
Quarter: 2009Q1

REPORT INFORMATION
  Report Type: 
  Country: None (occurrence: None)
  Receive Date: 20090121
  Receipt Date: 20081014
  Transmission Date: 20090719
  Serious: Yes (Other)
  Sender: FDA-Public Use
  Company Number: US-WYE-H05920008

PATIENT
  Age: 20 Year
  Sex: Female
  Weight: 49.94 kg

DRUGS (2)
  1. ADVIL PM [Suspect]
     Indication: INSOMNIA
     Dosage: 2 CAPLETS AS NEEDED, ORAL
     Route: 048
     Dates: start: 20070101
  2. ADVIL PM [Suspect]
     Indication: PAIN
     Dosage: 2 CAPLETS AS NEEDED, ORAL
     Route: 048
     Dates: start: 20070101

REACTIONS (3)
  - DRUG EFFECT DECREASED [None]
  - FEELING OF RELAXATION [None]
  - HYPERVIGILANCE [None]
